FAERS Safety Report 8602297 (Version 7)
Quarter: 2012Q4

REPORT INFORMATION
  Report Type: 
  Country: GB (occurrence: GB)
  Receive Date: 20120607
  Receipt Date: 20120907
  Transmission Date: 20130627
  Serious: Yes (Death, Other)
  Sender: FDA-Public Use
  Company Number: GB-RANBAXY-2012R1-56878

PATIENT
  Age: 40 Year
  Sex: Male
  Weight: 104 kg

DRUGS (23)
  1. CLARITHROMYCIN [Suspect]
     Indication: INFECTION
     Dosage: 500 mg, bid
     Route: 048
     Dates: start: 20111028, end: 20111030
  2. CLARITHROMYCIN [Interacting]
     Indication: LOWER RESPIRATORY TRACT INFECTION
  3. CLARITHROMYCIN [Interacting]
     Indication: PHARYNGITIS
  4. METHADONE [Interacting]
     Indication: PAIN
     Dosage: 45 ml, bid
     Route: 048
     Dates: start: 20111025
  5. METHADONE [Interacting]
     Indication: CROHN^S DISEASE
     Dosage: 40 ml, bid
     Route: 048
     Dates: start: 20111027
  6. METHADONE [Interacting]
     Dosage: 35 ml, bid
     Route: 048
     Dates: start: 20111028, end: 20111030
  7. HUMIRA [Suspect]
     Indication: CROHN^S DISEASE
     Dosage: 40 DF, Fortnight
     Route: 058
     Dates: start: 20111005, end: 20111019
  8. HUMIRA [Suspect]
     Dosage: 40 mg, 1 weeks
     Route: 030
     Dates: start: 20111005
  9. ORAMORPH [Concomitant]
     Indication: PAIN
     Dosage: 100 mg, qd
     Route: 048
     Dates: end: 20111027
  10. ORAMORPH [Concomitant]
     Indication: CROHN^S DISEASE
     Dosage: 100 mg, qd
     Route: 048
     Dates: start: 20110707, end: 20111025
  11. ORAMORPH [Concomitant]
     Dosage: UNK
     Route: 065
     Dates: start: 201102, end: 20111025
  12. ADCAL-D3 [Concomitant]
     Indication: CROHN^S DISEASE
     Dosage: 1 DF, bid
     Route: 048
     Dates: start: 20110808
  13. ADCAL-D3 [Concomitant]
     Indication: BONE DISORDER
  14. DIAZEPAM [Concomitant]
     Indication: ANXIETY
     Dosage: 2 mg, as necessary
     Route: 048
     Dates: start: 20111019
  15. LANSOPRAZOLE [Concomitant]
     Indication: GASTRITIS
     Dosage: 30 mg, qd
     Route: 048
     Dates: start: 20111019
  16. LANSOPRAZOLE [Concomitant]
     Indication: DYSPEPSIA
     Dosage: 30 mg, qd
     Route: 065
     Dates: start: 20070219
  17. MULTIVITAMIN [Concomitant]
     Indication: PRODUCT USED FOR UNKNOWN INDICATION
     Dosage: UNK
     Route: 065
  18. VENTOLIN [Concomitant]
     Indication: PRODUCT USED FOR UNKNOWN INDICATION
     Dosage: UNK
     Route: 065
  19. ASCORBIC ACID [Concomitant]
     Indication: PRODUCT USED FOR UNKNOWN INDICATION
     Dosage: UNK
     Route: 048
     Dates: start: 20111006
  20. HYDROXOCOBALAMIN [Concomitant]
     Indication: VITAMIN D DEFICIENCY
     Dosage: UNK
     Route: 065
  21. MST CONTINUS [Concomitant]
     Indication: PAIN
     Dosage: 20 mg, qd
     Route: 048
  22. PARACETAMOL [Concomitant]
     Indication: PAIN
     Dosage: UNK
     Route: 065
  23. VITAMIN SUPPLEMENT [Concomitant]
     Indication: NUTRITIONAL SUPPORT
     Dosage: UNK
     Route: 065
     Dates: start: 20110623

REACTIONS (36)
  - Death [Fatal]
  - Inhibitory drug interaction [Fatal]
  - Diffuse alveolar damage [Fatal]
  - Toxicity to various agents [Fatal]
  - Crohn^s disease [Unknown]
  - White blood cell count increased [Unknown]
  - Blood urine [Unknown]
  - C-reactive protein increased [Unknown]
  - Dysuria [Unknown]
  - Somnolence [Unknown]
  - Malaise [Unknown]
  - Headache [Unknown]
  - Heart rate increased [Unknown]
  - Hiccups [Unknown]
  - Rectal haemorrhage [Unknown]
  - Erythema [Unknown]
  - Pharyngeal erythema [Unknown]
  - Tremor [Unknown]
  - Dysarthria [Unknown]
  - Oropharyngeal pain [Unknown]
  - Hyperhidrosis [Unknown]
  - Potentiating drug interaction [Unknown]
  - Vomiting [Unknown]
  - Aggression [Unknown]
  - Vision blurred [Unknown]
  - Chest pain [Unknown]
  - Confusional state [Unknown]
  - Crohn^s disease [Fatal]
  - Dizziness [Unknown]
  - Diplopia [Unknown]
  - Dysuria [Unknown]
  - Adverse drug reaction [Unknown]
  - Pyrexia [Unknown]
  - Immunosuppression [Unknown]
  - Incorrect dose administered [Unknown]
  - Pain [Unknown]
